FAERS Safety Report 6050684-X (Version None)
Quarter: 2009Q1

REPORT INFORMATION
  Report Type: 
  Country: None (occurrence: None)
  Receive Date: 20090121
  Receipt Date: 20090121
  Transmission Date: 20090719
  Serious: No
  Sender: FDA-Public Use
  Company Number: None

PATIENT
  Age: 65 Year
  Sex: Female
  Weight: 68.0396 kg

DRUGS (1)
  1. AMO COMPLETE BLINK-N-CLEAN LENS 0.7 FL OZ ADVANCED MEDICAL OPTIC, INC. [Suspect]
     Indication: DRY EYE
     Dates: start: 20080101, end: 20080918

REACTIONS (2)
  - EYE IRRITATION [None]
  - EYE PAIN [None]
